FAERS Safety Report 22304687 (Version 2)
Quarter: 2023Q2

REPORT INFORMATION
  Report Type: Spontaneous
  Country: IR (occurrence: None)
  Receive Date: 20230510
  Receipt Date: 20230523
  Transmission Date: 20230722
  Serious: Yes (Other)
  Sender: FDA-Public Use
  Company Number: IR-Unichem Pharmaceuticals (USA) Inc-UCM202305-000545

PATIENT
  Age: 43 Year
  Sex: Male

DRUGS (1)
  1. METFORMIN HYDROCHLORIDE [Suspect]
     Active Substance: METFORMIN HYDROCHLORIDE
     Indication: Weight decreased
     Dosage: UNKNOWN

REACTIONS (2)
  - Generalised bullous fixed drug eruption [Recovered/Resolved]
  - Product use in unapproved indication [Unknown]
